FAERS Safety Report 22243120 (Version 1)
Quarter: 2023Q2

REPORT INFORMATION
  Report Type: Spontaneous
  Country: CN (occurrence: CN)
  Receive Date: 20230424
  Receipt Date: 20230424
  Transmission Date: 20230721
  Serious: Yes (Other)
  Sender: FDA-Public Use
  Company Number: CN-AMGEN-CHNSP2023067850

PATIENT

DRUGS (10)
  1. XGEVA [Suspect]
     Active Substance: DENOSUMAB
     Indication: Bone giant cell tumour
     Dosage: 120 MILLIGRAM, QMO
     Route: 065
  2. XGEVA [Suspect]
     Active Substance: DENOSUMAB
     Indication: Spinal cord neoplasm
  3. XGEVA [Suspect]
     Active Substance: DENOSUMAB
     Indication: Osteosarcoma
  4. XGEVA [Suspect]
     Active Substance: DENOSUMAB
     Indication: Chondrosarcoma
  5. XGEVA [Suspect]
     Active Substance: DENOSUMAB
     Indication: Dysplasia
  6. XGEVA [Suspect]
     Active Substance: DENOSUMAB
     Indication: Metastatic neoplasm
  7. XGEVA [Suspect]
     Active Substance: DENOSUMAB
     Indication: Lung neoplasm malignant
  8. XGEVA [Suspect]
     Active Substance: DENOSUMAB
     Indication: Breast cancer
  9. XGEVA [Suspect]
     Active Substance: DENOSUMAB
     Indication: Hepatic cancer
  10. XGEVA [Suspect]
     Active Substance: DENOSUMAB
     Indication: Haematological malignancy

REACTIONS (19)
  - Injection site pain [Unknown]
  - Myalgia [Unknown]
  - Muscle twitching [Unknown]
  - Paraesthesia [Unknown]
  - Fatigue [Unknown]
  - Diarrhoea [Unknown]
  - Nausea [Unknown]
  - Vomiting [Unknown]
  - Abdominal pain [Unknown]
  - Erythema [Unknown]
  - Adverse event [Unknown]
  - Pyrexia [Unknown]
  - Influenza like illness [Unknown]
  - Pruritus [Unknown]
  - Toothache [Unknown]
  - Muscle spasms [Unknown]
  - Headache [Unknown]
  - Cough [Unknown]
  - Arthralgia [Unknown]
